FAERS Safety Report 23535479 (Version 2)
Quarter: 2024Q1

REPORT INFORMATION
  Report Type: Report from Study
  Country: US (occurrence: None)
  Receive Date: 20240218
  Receipt Date: 20240305
  Transmission Date: 20240410
  Serious: Yes (Death, Other)
  Sender: FDA-Public Use
  Company Number: 2024A036483

PATIENT
  Age: 75 Year
  Sex: Male

DRUGS (2)
  1. FARXIGA [Suspect]
     Active Substance: DAPAGLIFLOZIN PROPANEDIOL
     Route: 048
  2. HUMILIN REQ INSULIN-SLIDING [Concomitant]
     Indication: Blood glucose increased
     Dates: end: 20240207

REACTIONS (5)
  - Death [Fatal]
  - Meningitis [Unknown]
  - Encephalitis [Unknown]
  - Seizure [Unknown]
  - Brain neoplasm [Unknown]

NARRATIVE: CASE EVENT DATE: 20240208
